FAERS Safety Report 9549693 (Version 1)
Quarter: 2013Q3

REPORT INFORMATION
  Report Type: Spontaneous
  Country: DE (occurrence: DE)
  Receive Date: 20130924
  Receipt Date: 20130924
  Transmission Date: 20140515
  Serious: Yes (Hospitalization, Other)
  Sender: FDA-Public Use
  Company Number: DE-TEVA-370486GER

PATIENT
  Age: 3 Decade
  Sex: Male

DRUGS (1)
  1. VIGIL [Suspect]
     Indication: SLEEP DISORDER
     Route: 048
     Dates: start: 2010, end: 201210

REACTIONS (2)
  - Toxic epidermal necrolysis [Unknown]
  - Exfoliative rash [Unknown]
